FAERS Safety Report 6558279-6 (Version None)
Quarter: 2010Q1

REPORT INFORMATION
  Report Type: 
  Country: None (occurrence: None)
  Receive Date: 20100128
  Receipt Date: 20100128
  Transmission Date: 20100710
  Serious: Yes (Life-Threatening, Hospitalization)
  Sender: FDA-Public Use
  Company Number: None

PATIENT
  Age: 31 Year
  Sex: Female
  Weight: 67.1324 kg

DRUGS (1)
  1. HALOPERIDOL [Suspect]
     Indication: OBSESSIVE-COMPULSIVE DISORDER
     Dosage: 1 MG AM AND PM ORAL
     Route: 048
     Dates: start: 20100106, end: 20100110

REACTIONS (9)
  - BRUXISM [None]
  - DYSPHONIA [None]
  - DYSPNOEA [None]
  - DYSTONIA [None]
  - HYPERSENSITIVITY [None]
  - HYPOAESTHESIA ORAL [None]
  - PHARYNGEAL HYPOAESTHESIA [None]
  - SWOLLEN TONGUE [None]
  - TONGUE PARALYSIS [None]
